FAERS Safety Report 9350343 (Version 1)
Quarter: 2013Q2

REPORT INFORMATION
  Report Type: Spontaneous
  Country: US (occurrence: None)
  Receive Date: 20130613
  Receipt Date: 20130613
  Transmission Date: 20140414
  Serious: No
  Sender: FDA-Public Use
  Company Number: None

PATIENT
  Sex: Female

DRUGS (2)
  1. AMLODIPINE [Suspect]
     Dosage: DATE UNKNOWN BUT USED 2-3 ?WAS BEFORE RETURNING TO BRAND NAME PRODUCT
  2. LOSARTAN/HCTZ 100/25 [Suspect]
     Dosage: 100/25
     Route: 048

REACTIONS (4)
  - Gingival bleeding [None]
  - Fatigue [None]
  - Cough [None]
  - Drug intolerance [None]
